FAERS Safety Report 8287262-8 (Version None)
Quarter: 2012Q2

REPORT INFORMATION
  Report Type: 
  Country: None (occurrence: None)
  Receive Date: 20120416
  Receipt Date: 20120416
  Transmission Date: 20120825
  Serious: Yes (Other)
  Sender: FDA-Public Use
  Company Number: None

PATIENT
  Age: 85 Year
  Sex: Male
  Weight: 95.254 kg

DRUGS (1)
  1. HEPARIN [Suspect]
     Indication: CAROTID ENDARTERECTOMY
     Dosage: 10,000 UNITS
     Route: 042
     Dates: start: 20120412, end: 20120412

REACTIONS (1)
  - COAGULATION TIME SHORTENED [None]
